FAERS Safety Report 24232995 (Version 1)
Quarter: 2024Q3

REPORT INFORMATION
  Report Type: Spontaneous
  Country: JP (occurrence: JP)
  Receive Date: 20240821
  Receipt Date: 20240821
  Transmission Date: 20241017
  Serious: Yes (Death, Life-Threatening, Hospitalization)
  Sender: ACCORD
  Company Number: JP-MLMSERVICE-20240806-PI151441-00128-1

PATIENT
  Age: 78 Year
  Sex: Male

DRUGS (11)
  1. BENDAMUSTINE [Suspect]
     Active Substance: BENDAMUSTINE
     Indication: Mantle cell lymphoma
     Dosage: ON DAYS 1 AND 2
  2. VINCRISTINE [Suspect]
     Active Substance: VINCRISTINE
     Indication: Cardiac neoplasm malignant
     Dosage: ON DAY 1
  3. PREDNISOLONE [Suspect]
     Active Substance: PREDNISOLONE
     Indication: Mantle cell lymphoma
     Dosage: ON DAY 1 TO DAY 5
  4. DOXORUBICIN [Suspect]
     Active Substance: DOXORUBICIN
     Indication: Cardiac neoplasm malignant
     Dosage: ON DAY 1
  5. CYCLOPHOSPHAMIDE [Suspect]
     Active Substance: CYCLOPHOSPHAMIDE
     Indication: Cardiac neoplasm malignant
     Dosage: ON DAY 1
  6. RITUXIMAB [Suspect]
     Active Substance: RITUXIMAB
     Indication: Mantle cell lymphoma
     Dosage: ON DAY 1
  7. BENDAMUSTINE [Suspect]
     Active Substance: BENDAMUSTINE
     Indication: Cardiac neoplasm malignant
     Dosage: ON DAYS 1 AND 2
  8. VINCRISTINE [Suspect]
     Active Substance: VINCRISTINE
     Indication: Mantle cell lymphoma
     Dosage: ON DAY 1
  9. DOXORUBICIN [Suspect]
     Active Substance: DOXORUBICIN
     Indication: Mantle cell lymphoma stage IV
     Dosage: ON DAY 1
  10. CYCLOPHOSPHAMIDE [Suspect]
     Active Substance: CYCLOPHOSPHAMIDE
     Indication: Mantle cell lymphoma
     Dosage: ON DAY 1
  11. RITUXIMAB [Suspect]
     Active Substance: RITUXIMAB
     Indication: Cardiac neoplasm malignant
     Dosage: ON DAY 1

REACTIONS (5)
  - Respiratory failure [Fatal]
  - Tumour lysis syndrome [Fatal]
  - Shock [Fatal]
  - Pulmonary embolism [Fatal]
  - Pulmonary infarction [Fatal]
